FAERS Safety Report 16693362 (Version 1)
Quarter: 2019Q3

REPORT INFORMATION
  Report Type: Spontaneous
  Country: IT (occurrence: IT)
  Receive Date: 20190812
  Receipt Date: 20190812
  Transmission Date: 20191004
  Serious: Yes (Death)
  Sender: FDA-Public Use
  Company Number: IT-PFIZER INC-2019341398

PATIENT
  Age: 69 Year
  Sex: Male

DRUGS (7)
  1. IMMUNOGLOBULIN HUMAN NORMAL [Concomitant]
     Active Substance: HUMAN IMMUNOGLOBULIN G
     Indication: SEIZURE
  2. CARBAMAZEPINE. [Concomitant]
     Active Substance: CARBAMAZEPINE
     Indication: SEIZURE
     Dosage: UNK
  3. CISPLATIN. [Suspect]
     Active Substance: CISPLATIN
     Indication: LIMBIC ENCEPHALITIS
     Dosage: UNK, EVERY 3 WEEKS (Q21)
     Route: 042
  4. VEPESID [Suspect]
     Active Substance: ETOPOSIDE
     Indication: LIMBIC ENCEPHALITIS
     Dosage: UNK, EVERY 3 WEEKS (Q21)
  5. PACLITAXEL. [Suspect]
     Active Substance: PACLITAXEL
     Indication: LIMBIC ENCEPHALITIS
     Dosage: UNK, CYCLIC
  6. IMMUNOGLOBULIN HUMAN NORMAL [Concomitant]
     Active Substance: HUMAN IMMUNOGLOBULIN G
     Indication: LIMBIC ENCEPHALITIS
     Dosage: 0.4 KG, DAILY
     Route: 042
  7. RITUXIMAB. [Concomitant]
     Active Substance: RITUXIMAB
     Indication: LIMBIC ENCEPHALITIS
     Dosage: 375 MG/M2, WEEKLY
     Route: 042

REACTIONS (2)
  - Neoplasm progression [Fatal]
  - Cachexia [Fatal]
